FAERS Safety Report 9676925 (Version 1)
Quarter: 2013Q4

REPORT INFORMATION
  Report Type: Spontaneous
  Country: US (occurrence: US)
  Receive Date: 20131108
  Receipt Date: 20131108
  Transmission Date: 20140711
  Serious: No
  Sender: FDA-Public Use
  Company Number: US-SANOFI-AVENTIS-2013SA088298

PATIENT
  Sex: 0

DRUGS (2)
  1. ALLEGRA [Suspect]
     Dosage: DOSE:6 MILLIGRAM(S)/MILLILITRE
     Route: 048
  2. ALLEGRA [Suspect]
     Route: 065

REACTIONS (1)
  - Abdominal discomfort [Unknown]
